FAERS Safety Report 16099861 (Version 1)
Quarter: 2019Q2

REPORT INFORMATION
  Report Type: Spontaneous
  Country: US (occurrence: US)
  Receive Date: 20190320
  Receipt Date: 20190320
  Transmission Date: 20190711
  Serious: No
  Sender: FDA-Public Use
  Company Number: None

PATIENT
  Age: 67 Year
  Sex: Female
  Weight: 90 kg

DRUGS (3)
  1. FLUOXETINE 10 MG GENERIC FOR PROZAC EP 360 [Suspect]
     Active Substance: FLUOXETINE HYDROCHLORIDE
     Indication: ANXIETY
     Dosage: ?          QUANTITY:15 TABLET(S);OTHER FREQUENCY:HALF TAB ONCE A DA;?
     Route: 048
  2. DIAZEPAM. [Concomitant]
     Active Substance: DIAZEPAM
  3. FLUOXETINE 10 MG GENERIC FOR PROZAC EP 360 [Suspect]
     Active Substance: FLUOXETINE HYDROCHLORIDE
     Indication: DEPRESSION
     Dosage: ?          QUANTITY:15 TABLET(S);OTHER FREQUENCY:HALF TAB ONCE A DA;?
     Route: 048

REACTIONS (6)
  - Anxiety [None]
  - Irritability [None]
  - Chills [None]
  - Depression [None]
  - Product substitution issue [None]
  - Paraesthesia [None]

NARRATIVE: CASE EVENT DATE: 20190315
